FAERS Safety Report 5448145-1 (Version None)
Quarter: 2007Q3

REPORT INFORMATION
  Report Type: 
  Country: None (occurrence: None)
  Receive Date: 20070803
  Receipt Date: 20070504
  Transmission Date: 20080115
  Serious: No
  Sender: FDA-Public Use
  Company Number: 200711422BWH

PATIENT
  Age: 39 Year
  Sex: Female

DRUGS (4)
  1. NEXAVAR [Suspect]
     Indication: OVARIAN CANCER RECURRENT
     Dosage: 400 MG, BID, ORAL
     Route: 048
     Dates: start: 20070419, end: 20070502
  2. COLESTID [Concomitant]
  3. EXTRACT OF APRICOT [Concomitant]
  4. DOXIL [Concomitant]

REACTIONS (6)
  - DIZZINESS [None]
  - ERYTHEMA [None]
  - FEELING HOT [None]
  - HEADACHE [None]
  - NAUSEA [None]
  - SWELLING FACE [None]
